FAERS Safety Report 7998607 (Version 2)
Quarter: 2012Q4

REPORT INFORMATION
  Report Type: 
  Country: US (occurrence: US)
  Receive Date: 20110620
  Receipt Date: 20121102
  Transmission Date: 20130627
  Serious: Yes (Hospitalization)
  Sender: FDA-Public Use
  Company Number: US-B.I. PHARMACEUTICALS,INC./RIDGEFIELD-2011-BP-14687BP

PATIENT
  Age: 75 None
  Sex: Male

DRUGS (7)
  1. PRADAXA [Suspect]
     Indication: ATRIAL FIBRILLATION
     Dosage: 300 mg
     Route: 048
     Dates: start: 200911, end: 201205
  2. PRADAXA [Suspect]
     Dosage: 150 mg
     Route: 048
     Dates: start: 201205, end: 20121015
  3. LIPITOR [Concomitant]
     Indication: BLOOD CHOLESTEROL INCREASED
     Dosage: 10 mg
     Route: 048
     Dates: start: 2004
  4. TIKOSYN [Concomitant]
     Indication: ATRIAL FIBRILLATION
     Dosage: 1000 mg
     Route: 048
  5. FUROSEMIDE [Concomitant]
     Indication: FLUID RETENTION
     Dosage: 20 mg
     Route: 048
     Dates: start: 200902
  6. BENAZEPRIL [Concomitant]
     Indication: HYPERTENSION
     Dosage: 10 mg
     Route: 048
  7. AMOLODIPINE/BENAZ [Concomitant]
     Indication: HYPERTENSION
     Route: 048
     Dates: start: 2011

REACTIONS (9)
  - Aortic valve incompetence [Recovered/Resolved]
  - Dyspepsia [Not Recovered/Not Resolved]
  - Eye haemorrhage [Not Recovered/Not Resolved]
  - Eructation [Not Recovered/Not Resolved]
  - Haemorrhage [Not Recovered/Not Resolved]
  - Hiccups [Recovered/Resolved]
  - Middle insomnia [Not Recovered/Not Resolved]
  - Dyspepsia [Not Recovered/Not Resolved]
  - Hypertension [Recovered/Resolved]
